FAERS Safety Report 22041263 (Version 2)
Quarter: 2023Q1

REPORT INFORMATION
  Report Type: Report from Study
  Country: ES (occurrence: None)
  Receive Date: 20230227
  Receipt Date: 20230303
  Transmission Date: 20230418
  Serious: Yes (Hospitalization)
  Sender: FDA-Public Use
  Company Number: ES-ROCHE-3290522

PATIENT
  Age: 76 Year
  Sex: Male
  Weight: 63 kg

DRUGS (20)
  1. TOCILIZUMAB [Suspect]
     Active Substance: TOCILIZUMAB
     Indication: Colorectal cancer metastatic
     Dosage: ON 29/DEC/2022, HE RECEIVED MOST RECENT DOSE OF STUDY DRUG PRIOR TO AE AND SAE (AT 10:15 AM TO 11:30
     Route: 042
     Dates: start: 20221229
  2. RO-7288820 [Suspect]
     Active Substance: RO-7288820
     Indication: Colorectal cancer metastatic
     Dosage: ON 17/JAN/2023, (AT 12:15 PM TO 3:13 PM) HE RECEIVED MOST RECENT DOSE OF STUDY DRUG PRIOR TO AE, DOS
     Route: 042
     Dates: start: 20221227
  3. DEXKETOPROFEN [Concomitant]
     Active Substance: DEXKETOPROFEN
     Indication: Arthralgia
     Route: 048
     Dates: start: 20230131
  4. DEXKETOPROFEN [Concomitant]
     Active Substance: DEXKETOPROFEN
     Indication: Cytokine release syndrome
     Route: 042
     Dates: start: 20230117, end: 20230118
  5. MOMETASONE [Concomitant]
     Active Substance: MOMETASONE
     Indication: Dry skin
     Route: 061
     Dates: start: 20230110
  6. PREDNISONE [Concomitant]
     Active Substance: PREDNISONE
     Indication: Dry skin
     Route: 048
     Dates: start: 20230110
  7. BEMIPARIN [Concomitant]
     Active Substance: BEMIPARIN
     Route: 058
     Dates: start: 2021, end: 20230222
  8. ENALAPRIL [Concomitant]
     Active Substance: ENALAPRIL
     Indication: Hypertension
     Route: 048
     Dates: start: 2019, end: 20230222
  9. IRON [Concomitant]
     Active Substance: IRON
     Route: 048
     Dates: start: 2021, end: 20230216
  10. LINAGLIPTIN [Concomitant]
     Active Substance: LINAGLIPTIN
     Indication: Diabetes mellitus
     Route: 048
     Dates: start: 201810, end: 20230222
  11. OMEPRAZOLE [Concomitant]
     Active Substance: OMEPRAZOLE
     Route: 048
     Dates: start: 2011
  12. ACETAMINOPHEN [Concomitant]
     Active Substance: ACETAMINOPHEN
     Route: 048
     Dates: start: 2022, end: 20230216
  13. PREGABALIN [Concomitant]
     Active Substance: PREGABALIN
     Route: 048
     Dates: start: 2021, end: 20230216
  14. PREGABALIN [Concomitant]
     Active Substance: PREGABALIN
     Route: 048
     Dates: start: 20230217, end: 20230222
  15. ROSUVASTATIN [Concomitant]
     Active Substance: ROSUVASTATIN
     Indication: Hyperlipidaemia
     Route: 048
     Dates: start: 2018, end: 20230216
  16. VITAMIN B12 [Concomitant]
     Active Substance: CYANOCOBALAMIN
     Route: 030
     Dates: start: 2022, end: 20230216
  17. MEROPENEM [Concomitant]
     Active Substance: MEROPENEM
     Route: 042
     Dates: start: 20230217, end: 20230221
  18. FUROSEMIDE [Concomitant]
     Active Substance: FUROSEMIDE
     Route: 042
     Dates: start: 20230219, end: 20230219
  19. POTASSIUM [Concomitant]
     Active Substance: POTASSIUM
     Route: 042
     Dates: start: 20230219, end: 20230222
  20. INDOMETHACIN [Concomitant]
     Active Substance: INDOMETHACIN
     Route: 048
     Dates: start: 20230220, end: 20230222

REACTIONS (1)
  - Tumour associated fever [Recovered/Resolved]

NARRATIVE: CASE EVENT DATE: 20230217
